FAERS Safety Report 18204294 (Version 1)
Quarter: 2020Q3

REPORT INFORMATION
  Report Type: Spontaneous
  Country: FR (occurrence: FR)
  Receive Date: 20200827
  Receipt Date: 20200827
  Transmission Date: 20201105
  Serious: Yes (Life-Threatening)
  Sender: FDA-Public Use
  Company Number: FR-MYLANLABS-2020M1073364

PATIENT
  Age: 72 Year
  Sex: Female
  Weight: 115 kg

DRUGS (10)
  1. PROPOFOL LIPURO [Suspect]
     Active Substance: PROPOFOL
     Indication: ANAESTHESIA
     Dosage: 200 MILLIGRAM, TOTAL
     Route: 042
     Dates: start: 20200727, end: 20200727
  2. ROCURONIUM [Suspect]
     Active Substance: ROCURONIUM BROMIDE
     Indication: ANAESTHESIA
     Dosage: 100 MILLIGRAM, TOTAL
     Route: 042
     Dates: start: 20200727, end: 20200727
  3. ATROPINE SULFATE AGUETTANT [Suspect]
     Active Substance: ATROPINE SULFATE
     Indication: PROPHYLAXIS
     Dosage: 0.75 MILLIGRAM, TOTAL
     Route: 042
     Dates: start: 20200727, end: 20200727
  4. BLEU PATENTE V [Suspect]
     Active Substance: PATENT BLUE V
     Indication: LYMPHATIC MAPPING
     Dosage: 2 MILLILITER, TOTAL
     Route: 058
     Dates: start: 20200727, end: 20200727
  5. MYLAN REMIFENTANIL [Suspect]
     Active Substance: REMIFENTANIL
     Indication: ANAESTHESIA
     Dosage: 15 MICROGRAM, TOTAL
     Route: 042
     Dates: start: 20200727, end: 20200727
  6. CEFAZOLINE MYLAN [Suspect]
     Active Substance: CEFAZOLIN SODIUM
     Indication: PROPHYLAXIS
     Dosage: 4 GRAM, TOTAL
     Route: 042
     Dates: start: 20200727, end: 20200727
  7. DEXAMETHASONE MYLAN [Suspect]
     Active Substance: DEXAMETHASONE
     Indication: PROPHYLAXIS
     Dosage: 8 MILLIGRAM, TOTAL
     Route: 042
     Dates: start: 20200727, end: 20200727
  8. EPHEDRINE. [Suspect]
     Active Substance: EPHEDRINE
     Indication: PROPHYLAXIS
     Dosage: 9 MILLIGRAM, TOTAL
     Route: 042
     Dates: start: 20200727, end: 20200727
  9. XYLOCARD [Suspect]
     Active Substance: LIDOCAINE HYDROCHLORIDE
     Indication: PROPHYLAXIS
     Dosage: UNK
     Route: 041
     Dates: start: 20200727, end: 20200727
  10. DROPERIDOL AGUETTANT [Suspect]
     Active Substance: DROPERIDOL
     Indication: ANAESTHESIA
     Dosage: 1.25 MILLIGRAM, TOTAL
     Route: 042
     Dates: start: 20200727, end: 20200727

REACTIONS (1)
  - Anaphylactic shock [Recovered/Resolved]

NARRATIVE: CASE EVENT DATE: 20200727
